FAERS Safety Report 6791008-X (Version None)
Quarter: 2010Q2

REPORT INFORMATION
  Report Type: 
  Country: None (occurrence: None)
  Receive Date: 20100624
  Receipt Date: 20100615
  Transmission Date: 20101027
  Serious: Yes (Hospitalization, Other)
  Sender: FDA-Public Use
  Company Number: CA-ABBOTT-10P-028-0643840-00

PATIENT
  Sex: Male
  Weight: 76 kg

DRUGS (2)
  1. MAVIK [Suspect]
     Indication: ESSENTIAL HYPERTENSION
     Dosage: 1MG DAILY
     Route: 048
     Dates: start: 20090909
  2. NORVASC [Concomitant]
     Indication: DRUG USE FOR UNKNOWN INDICATION
     Dosage: 5MG DAILY

REACTIONS (6)
  - ABDOMINAL PAIN [None]
  - ADENOCARCINOMA [None]
  - ASCITES [None]
  - HEPATIC NEOPLASM [None]
  - METASTATIC NEOPLASM [None]
  - NEOPLASM MALIGNANT [None]
